FAERS Safety Report 12449648 (Version 1)
Quarter: 2016Q2

REPORT INFORMATION
  Report Type: Spontaneous
  Country: FI (occurrence: FI)
  Receive Date: 20160609
  Receipt Date: 20160609
  Transmission Date: 20160815
  Serious: Yes (Disabling, Other)
  Sender: FDA-Public Use
  Company Number: FI-AMGEN-FINSP2016071716

PATIENT
  Age: 69 Year
  Sex: Male

DRUGS (3)
  1. PREDNISON [Concomitant]
     Active Substance: PREDNISONE
     Dosage: 10 MG, QD
  2. XGEVA [Suspect]
     Active Substance: DENOSUMAB
     Indication: METASTASES TO BONE
     Dosage: UNK UNK, QMO
     Route: 058
     Dates: start: 20120515
  3. PROFAMID [Concomitant]
     Dosage: 250 MG, TID

REACTIONS (1)
  - Osteonecrosis [Recovered/Resolved with Sequelae]

NARRATIVE: CASE EVENT DATE: 20160119
